FAERS Safety Report 8493233 (Version 2)
Quarter: 2012Q4

REPORT INFORMATION
  Report Type: 
  Country: IT (occurrence: IT)
  Receive Date: 20120404
  Receipt Date: 20121019
  Transmission Date: 20130627
  Serious: Yes (Hospitalization)
  Sender: FDA-Public Use
  Company Number: IT-PFIZER INC-2012080132

PATIENT
  Age: 48 Year
  Sex: Female

DRUGS (2)
  1. SALAZOPYRIN [Suspect]
     Indication: RHEUMATOID ARTHRITIS
     Dosage: 2 g daily
     Route: 048
     Dates: start: 20120210, end: 20120228
  2. MEDROL [Concomitant]
     Dosage: UNK

REACTIONS (8)
  - Arthralgia [Recovering/Resolving]
  - Pyrexia [Recovering/Resolving]
  - Leukocytosis [Recovering/Resolving]
  - Transaminases increased [Recovering/Resolving]
  - Oropharyngeal pain [Recovering/Resolving]
  - Serum ferritin increased [Recovering/Resolving]
  - C-reactive protein increased [Unknown]
  - Red blood cell sedimentation rate increased [Unknown]
